FAERS Safety Report 14290778 (Version 5)
Quarter: 2018Q2

REPORT INFORMATION
  Report Type: Spontaneous
  Country: JP (occurrence: JP)
  Receive Date: 20171215
  Receipt Date: 20180424
  Transmission Date: 20180711
  Serious: Yes (Hospitalization, Disabling, Other)
  Sender: FDA-Public Use
  Company Number: JP-AMGEN-JPNSP2017158861

PATIENT
  Age: 7 Decade
  Sex: Male
  Weight: 67 kg

DRUGS (10)
  1. VECTIBIX [Suspect]
     Active Substance: PANITUMUMAB
     Dosage: 6 MG/KG, Q2WEEKS
     Route: 041
     Dates: start: 20170915, end: 20171102
  2. FLUOROURACIL. [Concomitant]
     Active Substance: FLUOROURACIL
     Indication: COLON CANCER
     Dosage: UNK
     Route: 041
     Dates: start: 20170526
  3. CALCIUM LEVOFOLINATE [Concomitant]
     Active Substance: LEVOLEUCOVORIN CALCIUM
     Dosage: UNK
     Route: 041
     Dates: start: 20170526
  4. VECTIBIX [Suspect]
     Active Substance: PANITUMUMAB
     Dosage: 6 MG/KG, Q2WEEKS
     Route: 041
     Dates: start: 20171117
  5. IRINOTECAN HYDROCHLORIDE. [Concomitant]
     Active Substance: IRINOTECAN HYDROCHLORIDE
     Indication: COLORECTAL CANCER METASTATIC
     Dosage: UNK
     Route: 041
     Dates: start: 20170820
  6. KETOPROFEN. [Concomitant]
     Active Substance: KETOPROFEN
     Dosage: UNK
     Route: 062
  7. VECTIBIX [Suspect]
     Active Substance: PANITUMUMAB
     Indication: COLORECTAL CANCER METASTATIC
     Dosage: 6 MG/KG, Q2WEEKS
     Route: 041
     Dates: start: 20170526, end: 20170831
  8. CALCIUM LEVOFOLINATE [Concomitant]
     Active Substance: LEVOLEUCOVORIN CALCIUM
     Indication: COLORECTAL CANCER METASTATIC
     Dosage: UNK
     Route: 041
     Dates: start: 20170820
  9. IRINOTECAN HYDROCHLORIDE. [Concomitant]
     Active Substance: IRINOTECAN HYDROCHLORIDE
     Dosage: UNK
     Route: 041
     Dates: start: 20170526
  10. KETOPROFEN. [Concomitant]
     Active Substance: KETOPROFEN
     Dosage: UNK
     Route: 062

REACTIONS (9)
  - Skin disorder [Recovered/Resolved]
  - Colon cancer metastatic [Unknown]
  - Angular cheilitis [Recovered/Resolved]
  - Dermatitis acneiform [Recovered/Resolved]
  - Malaise [Unknown]
  - Deep vein thrombosis [Recovered/Resolved]
  - Disease progression [Unknown]
  - Stomatitis [Recovered/Resolved]
  - Neuropathy peripheral [Not Recovered/Not Resolved]

NARRATIVE: CASE EVENT DATE: 20170602
